FAERS Safety Report 9209772 (Version 1)
Quarter: 2013Q1

REPORT INFORMATION
  Report Type: Spontaneous
  Country: US (occurrence: None)
  Receive Date: 20120820
  Receipt Date: 20120820
  Transmission Date: 20140127
  Serious: No
  Sender: FDA-Public Use
  Company Number: 1000030607

PATIENT
  Age: 52 Year
  Sex: Female

DRUGS (2)
  1. VIIBRYD [Suspect]
     Indication: DEPRESSION
     Dosage: 10 MG, 1 IN 1 D
     Dates: start: 201204, end: 2012
  2. SERTRALINE [Concomitant]

REACTIONS (6)
  - Nausea [None]
  - Dizziness [None]
  - Somnolence [None]
  - Confusional state [None]
  - Disorientation [None]
  - Medication error [None]
